FAERS Safety Report 20421967 (Version 1)
Quarter: 2022Q1

REPORT INFORMATION
  Report Type: Spontaneous
  Country: US (occurrence: None)
  Receive Date: 20220203
  Receipt Date: 20220203
  Transmission Date: 20220423
  Serious: Yes (Life-Threatening, Hospitalization)
  Sender: FDA-Public Use
  Company Number: None

PATIENT
  Age: 53 Year
  Sex: Female
  Weight: 70.65 kg

DRUGS (1)
  1. INJECTAFER [Suspect]
     Active Substance: FERRIC CARBOXYMALTOSE
     Indication: Pernicious anaemia
     Dates: start: 20210818, end: 20211129

REACTIONS (6)
  - Arthralgia [None]
  - Bone pain [None]
  - Hypophosphataemia [None]
  - Gait inability [None]
  - Hypomagnesaemia [None]
  - Renal disorder [None]

NARRATIVE: CASE EVENT DATE: 20211129
